FAERS Safety Report 7555416 (Version 2)
Quarter: 2014Q1

REPORT INFORMATION
  Report Type: Report from Study
  Country: ES (occurrence: ES)
  Receive Date: 20100826
  Receipt Date: 20140312
  Transmission Date: 20141002
  Serious: Yes (Hospitalization)
  Sender: FDA-Public Use
  Company Number: ES-ELI_LILLY_AND_COMPANY-ES201008006578

PATIENT
  Age: 65 Year
  Sex: Female
  Weight: 75 kg

DRUGS (9)
  1. TERIPARATIDE [Suspect]
     Indication: OSTEOPOROSIS
     Dosage: 20 UG, QD
     Route: 058
     Dates: start: 20091202, end: 201112
  2. TERIPARATIDE [Suspect]
     Route: 065
  3. INSULIN [Concomitant]
     Indication: DIABETES MELLITUS
     Dosage: UNK, DAILY (1/D)
     Route: 058
  4. ADIRO [Concomitant]
     Indication: HYPERTENSION
     Dosage: 100 MG, DAILY (1/D)
     Route: 048
  5. LEVOTHROID [Concomitant]
     Indication: THYROID DISORDER
     Dosage: 100 MG, DAILY (1/D)
     Route: 048
  6. NOVONORM [Concomitant]
     Indication: DIABETES MELLITUS
     Dosage: UNK, DAILY (1/D)
     Route: 048
  7. COMPETACT [Concomitant]
     Indication: FEELING OF RELAXATION
     Dosage: UNK, BID
  8. EUTIROX [Concomitant]
     Indication: THYROID DISORDER
     Dosage: UNK, OTHER
  9. INSULIN [Concomitant]

REACTIONS (4)
  - Device failure [Recovering/Resolving]
  - Blood glucose increased [Recovered/Resolved]
  - Incorrect drug administration duration [Unknown]
  - Bone loss [Unknown]
